FAERS Safety Report 14114775 (Version 1)
Quarter: 2017Q4

REPORT INFORMATION
  Report Type: Spontaneous
  Country: US (occurrence: US)
  Receive Date: 20171023
  Receipt Date: 20171023
  Transmission Date: 20180321
  Serious: No
  Sender: FDA-Public Use
  Company Number: US-ALLERGAN-1718472US

PATIENT
  Sex: Female

DRUGS (9)
  1. VITAMINS [Concomitant]
     Active Substance: VITAMINS
  2. LINZESS [Suspect]
     Active Substance: LINACLOTIDE
     Indication: ABNORMAL FAECES
     Dosage: 72 ?G, UNK
     Route: 048
     Dates: start: 201704
  3. ELIQUIS [Concomitant]
     Active Substance: APIXABAN
     Indication: ATRIAL FIBRILLATION
  4. PROBIOTIC [Concomitant]
     Active Substance: PROBIOTICS NOS
  5. VITAMIN B12 [Concomitant]
     Active Substance: CYANOCOBALAMIN
  6. MAGNESIUM [Concomitant]
     Active Substance: MAGNESIUM
     Indication: ASTHENIA
  7. DIGOXIN. [Concomitant]
     Active Substance: DIGOXIN
     Indication: ATRIAL FIBRILLATION
  8. VITAMIN D3 [Concomitant]
     Active Substance: CHOLECALCIFEROL
  9. FLECAINIDE [Concomitant]
     Active Substance: FLECAINIDE
     Indication: ATRIAL FIBRILLATION

REACTIONS (2)
  - Off label use [Unknown]
  - Drug ineffective [Unknown]
